FAERS Safety Report 7851260-6 (Version None)
Quarter: 2011Q4

REPORT INFORMATION
  Report Type: 
  Country: None (occurrence: None)
  Receive Date: 20111026
  Receipt Date: 20110831
  Transmission Date: 20120403
  Serious: No
  Sender: FDA-Public Use
  Company Number: US-BAYER-2011-087578

PATIENT
  Age: 61 Year
  Sex: Female
  Weight: 68 kg

DRUGS (1)
  1. ALEVE (CAPLET) [Suspect]
     Dosage: 1 DF, BID
     Route: 048
     Dates: start: 19910101, end: 20110715

REACTIONS (2)
  - NO ADVERSE EVENT [None]
  - ARTHRALGIA [None]
